FAERS Safety Report 7726799-4 (Version None)
Quarter: 2011Q3

REPORT INFORMATION
  Report Type: 
  Country: None (occurrence: None)
  Receive Date: 20110902
  Receipt Date: 20110523
  Transmission Date: 20111222
  Serious: Yes (Other)
  Sender: FDA-Public Use
  Company Number: US-GLAXOSMITHKLINE-B0721070A

PATIENT
  Sex: Female
  Weight: 106.8 kg

DRUGS (9)
  1. SINGULAIR [Concomitant]
  2. XANAX [Concomitant]
  3. LORTAB [Concomitant]
  4. PULMICORT [Concomitant]
  5. AVANDIA [Suspect]
     Indication: DIABETES MELLITUS
     Dosage: 8MG PER DAY
     Route: 048
     Dates: start: 20020522, end: 20100201
  6. WELCHOL [Concomitant]
  7. OMEPRAZOLE [Concomitant]
  8. DIOVAN HCT [Concomitant]
  9. FLONASE [Concomitant]

REACTIONS (3)
  - CARDIOVASCULAR DISORDER [None]
  - MYOCARDIAL ISCHAEMIA [None]
  - PALPITATIONS [None]
